FAERS Safety Report 8565634-1 (Version None)
Quarter: 2012Q3

REPORT INFORMATION
  Report Type: 
  Country: None (occurrence: None)
  Receive Date: 20120803
  Receipt Date: 20120726
  Transmission Date: 20120928
  Serious: Yes (Hospitalization)
  Sender: FDA-Public Use
  Company Number: AU-BRISTOL-MYERS SQUIBB COMPANY-16808990

PATIENT
  Age: 68 Year
  Sex: Female
  Weight: 84 kg

DRUGS (8)
  1. METHOTREXATE [Suspect]
  2. PREDNISOLONE [Concomitant]
  3. NEXIUM [Concomitant]
  4. DIAZEPAM [Concomitant]
  5. ORENCIA [Suspect]
     Indication: RHEUMATOID ARTHRITIS
     Route: 042
     Dates: start: 20110124
  6. ARAVA [Concomitant]
  7. OXYCONTIN [Concomitant]
  8. ENDEP [Concomitant]

REACTIONS (2)
  - PNEUMONIA [None]
  - NEUROLOGICAL SYMPTOM [None]
